FAERS Safety Report 5120123-1 (Version None)
Quarter: 2006Q4

REPORT INFORMATION
  Report Type: 
  Country: None (occurrence: None)
  Receive Date: 20061002
  Receipt Date: 20061002
  Transmission Date: 20070319
  Serious: Yes (Other)
  Sender: FDA-Public Use
  Company Number: None

PATIENT
  Sex: Female
  Weight: 127.9144 kg

DRUGS (2)
  1. DARVOCET-N 100 [Suspect]
     Indication: NEURALGIA
     Dosage: ONE OR TWO QID PRN PO
     Route: 048
     Dates: start: 20030401
  2. DARVOCET-N 100 [Suspect]
     Indication: OSTEOARTHRITIS
     Dosage: ONE OR TWO QID PRN PO
     Route: 048
     Dates: start: 20030401

REACTIONS (2)
  - DRUG EFFECT DECREASED [None]
  - VOMITING [None]
